FAERS Safety Report 4853258-9 (Version None)
Quarter: 2005Q4

REPORT INFORMATION
  Report Type: 
  Country: None (occurrence: None)
  Receive Date: 20051214
  Receipt Date: 20051205
  Transmission Date: 20060501
  Serious: Yes (Other)
  Sender: FDA-Public Use
  Company Number: US-SANOFI-SYNTHELABO-A03200504120

PATIENT
  Sex: Female

DRUGS (2)
  1. PLAQUENIL [Suspect]
     Indication: DRUG USE FOR UNKNOWN INDICATION
     Dosage: UNK
     Route: 048
     Dates: start: 20051101, end: 20051101
  2. PLAQUENIL [Suspect]
     Dosage: UNK
     Route: 048
     Dates: start: 20051101, end: 20051101

REACTIONS (4)
  - ANGIONEUROTIC OEDEMA [None]
  - APHONIA [None]
  - DYSPHAGIA [None]
  - SWELLING FACE [None]
